FAERS Safety Report 23167112 (Version 1)
Quarter: 2023Q4

REPORT INFORMATION
  Report Type: Spontaneous
  Country: US (occurrence: None)
  Receive Date: 20231109
  Receipt Date: 20231109
  Transmission Date: 20240109
  Serious: No
  Sender: FDA-Public Use
  Company Number: None

PATIENT
  Age: 61 Year
  Sex: Female

DRUGS (1)
  1. CYCLOSPORINE [Suspect]
     Active Substance: CYCLOSPORINE
     Indication: Idiopathic urticaria
     Dosage: 90 UNK-UNKNOWN DAILY ORAL
     Route: 048
     Dates: start: 20230810, end: 20231108

REACTIONS (1)
  - Hypertension [None]

NARRATIVE: CASE EVENT DATE: 20231108
